FAERS Safety Report 4754133-0 (Version None)
Quarter: 2005Q3

REPORT INFORMATION
  Report Type: 
  Country: None (occurrence: None)
  Receive Date: 20050825
  Receipt Date: 20050622
  Transmission Date: 20060218
  Serious: Yes (Other)
  Sender: FDA-Public Use
  Company Number: HQWYE638623JUN05

PATIENT
  Age: 7 Month
  Sex: Female
  Weight: 10.9 kg

DRUGS (2)
  1. CHILDREN'S ADVIL [Suspect]
     Indication: PYREXIA
     Dosage: 1 ML TWICE DAILY, ORAL;   ORAL
     Route: 048
     Dates: start: 20050401, end: 20050401
  2. CHILDREN'S ADVIL [Suspect]
     Indication: PYREXIA
     Dosage: 1 ML TWICE DAILY, ORAL;   ORAL
     Route: 048
     Dates: start: 20050612

REACTIONS (2)
  - RASH PAPULAR [None]
  - RASH PRURITIC [None]
